FAERS Safety Report 5181535-3 (Version None)
Quarter: 2006Q4

REPORT INFORMATION
  Report Type: 
  Country: None (occurrence: None)
  Receive Date: 20061220
  Receipt Date: 20060127
  Transmission Date: 20070319
  Serious: Yes (Other)
  Sender: FDA-Public Use
  Company Number: US-GLAXOSMITHKLINE-A0591195A

PATIENT
  Age: 49 Year
  Sex: Male

DRUGS (1)
  1. COMMIT [Suspect]
     Dosage: 2MG UNKNOWN

REACTIONS (3)
  - DRUG ABUSER [None]
  - DRUG INEFFECTIVE [None]
  - NICOTINE DEPENDENCE [None]
